FAERS Safety Report 5853081-2 (Version None)
Quarter: 2008Q3

REPORT INFORMATION
  Report Type: 
  Country: None (occurrence: None)
  Receive Date: 20080821
  Receipt Date: 20080807
  Transmission Date: 20090109
  Serious: Yes (Hospitalization)
  Sender: FDA-Public Use
  Company Number: JP-EISAI MEDICAL RESEARCH-E0800-00011-SPO-JP

PATIENT
  Age: 63 Year
  Sex: Female

DRUGS (8)
  1. SALAGEN [Suspect]
     Indication: SJOGREN'S SYNDROME
     Route: 048
     Dates: start: 20080725, end: 20080801
  2. ZITHROMAX [Concomitant]
     Indication: NASOPHARYNGITIS
     Route: 048
     Dates: start: 20080729
  3. CLARITHROMYCIN [Concomitant]
     Route: 048
     Dates: start: 20080101
  4. RABEPRAZOLE SODIUM [Concomitant]
     Route: 048
  5. THYRADIN [Concomitant]
     Route: 048
  6. AMLODIN OD [Concomitant]
     Route: 048
  7. MARZULENE [Concomitant]
     Route: 048
  8. FERROMIA [Concomitant]
     Route: 048

REACTIONS (1)
  - INTERSTITIAL LUNG DISEASE [None]
